FAERS Safety Report 17772270 (Version 1)
Quarter: 2020Q2

REPORT INFORMATION
  Report Type: Report from Study
  Country: US (occurrence: US)
  Receive Date: 20200512
  Receipt Date: 20200512
  Transmission Date: 20200714
  Serious: Yes (Hospitalization)
  Sender: FDA-Public Use
  Company Number: US-MYLANLABS-2020M1046802

PATIENT

DRUGS (5)
  1. GEMCITABINE. [Suspect]
     Active Substance: GEMCITABINE
     Indication: METASTATIC CARCINOMA OF THE BLADDER
  2. DOCETAXEL. [Suspect]
     Active Substance: DOCETAXEL
     Indication: METASTATIC CARCINOMA OF THE BLADDER
  3. ALKA-SELTZER XTRA STRENGTH [Concomitant]
     Active Substance: ANHYDROUS CITRIC ACID\ASPIRIN\SODIUM BICARBONATE
     Indication: URINE ALKALINISATION THERAPY
     Dosage: 2 TABLETS AT THE NIGHT BEFORE THE PROCEDURE...
     Route: 065
  4. DOCETAXEL. [Suspect]
     Active Substance: DOCETAXEL
     Indication: BLADDER CANCER
     Dosage: 20MG IN 10ML OF WARM WATER; SCHEDULED 6 INSTALLATIONS...
     Route: 043
  5. GEMCITABINE. [Suspect]
     Active Substance: GEMCITABINE
     Indication: BLADDER CANCER
     Dosage: 200MG IN 10ML OF WARM WATER; SCHEDULED 6 INSTALLATIONS...
     Route: 043

REACTIONS (1)
  - Treatment failure [Unknown]
